FAERS Safety Report 24771873 (Version 1)
Quarter: 2024Q4

REPORT INFORMATION
  Report Type: Spontaneous
  Country: US (occurrence: US)
  Receive Date: 20241224
  Receipt Date: 20241224
  Transmission Date: 20250114
  Serious: No
  Sender: RIGEL PHARMACEUTICALS
  Company Number: US-RIGEL Pharmaceuticals, INC-20240900063

PATIENT
  Sex: Male

DRUGS (1)
  1. REZLIDHIA [Suspect]
     Active Substance: OLUTASIDENIB
     Indication: Acute myeloid leukaemia
     Dosage: 150 MG, BID
     Route: 048
     Dates: start: 20240824

REACTIONS (5)
  - White blood cell count [Unknown]
  - Haemoglobin [Unknown]
  - Pain [Unknown]
  - Sleep disorder [Unknown]
  - Constipation [Unknown]

NARRATIVE: CASE EVENT DATE: 20240101
